FAERS Safety Report 16775932 (Version 11)
Quarter: 2022Q2

REPORT INFORMATION
  Report Type: Spontaneous
  Country: US (occurrence: US)
  Receive Date: 20190905
  Receipt Date: 20220505
  Transmission Date: 20220721
  Serious: No
  Sender: FDA-Public Use
  Company Number: US-PFIZER INC-2019379169

PATIENT
  Age: 68 Year
  Sex: Female
  Weight: 68 kg

DRUGS (12)
  1. XELJANZ [Suspect]
     Active Substance: TOFACITINIB CITRATE
     Indication: Colitis ulcerative
     Dosage: 10 MG, 2X/DAY
     Route: 048
     Dates: start: 20191115
  2. XELJANZ [Suspect]
     Active Substance: TOFACITINIB CITRATE
     Dosage: UNK
     Dates: start: 20191115
  3. XELJANZ [Suspect]
     Active Substance: TOFACITINIB CITRATE
     Dosage: 15 MG, DAILY (10MG IN THE MORNING AND 5MG IN THE EVENING)
  4. XELJANZ [Suspect]
     Active Substance: TOFACITINIB CITRATE
     Dosage: 5 MG, DAILY (HALF A PILL IN THE MORNING AND HALF A PILL IN THE EVENING)
  5. XELJANZ [Suspect]
     Active Substance: TOFACITINIB CITRATE
     Dosage: 20 MG (2X10 MG TABLETS), DAILY
  6. BUDESONIDE [Concomitant]
     Active Substance: BUDESONIDE
     Indication: Steroid therapy
     Dosage: 9MG FOR 30 DAYS
     Dates: start: 20191123, end: 20191222
  7. BUDESONIDE [Concomitant]
     Active Substance: BUDESONIDE
     Dosage: 6 MG, FOR 30 DAYS
  8. BUDESONIDE [Concomitant]
     Active Substance: BUDESONIDE
     Dosage: 3 MG FOR 30 DAYS
  9. BUDESONIDE [Concomitant]
     Active Substance: BUDESONIDE
     Dosage: UNK
     Dates: start: 20191215, end: 20200214
  10. PREDNISONE [Concomitant]
     Active Substance: PREDNISONE
     Dosage: UNK
  11. METAMUCIL [Concomitant]
     Active Substance: PLANTAGO SEED
     Dosage: UNK, 1X/DAY (ONCE A DAY SHE MIXES A TABLESPOON IN 8OZ OF WATER)
  12. ROSUVASTATIN [Concomitant]
     Active Substance: ROSUVASTATIN
     Dosage: UNK

REACTIONS (16)
  - Drug ineffective [Recovered/Resolved]
  - Intentional product misuse [Unknown]
  - Laryngitis [Recovered/Resolved]
  - Hypoacusis [Recovered/Resolved]
  - Muscle spasms [Recovered/Resolved]
  - Hot flush [Not Recovered/Not Resolved]
  - Blood cholesterol increased [Not Recovered/Not Resolved]
  - Condition aggravated [Not Recovered/Not Resolved]
  - Osteopenia [Unknown]
  - Alopecia [Unknown]
  - Dizziness [Unknown]
  - Heart rate abnormal [Unknown]
  - Lymphadenopathy [Unknown]
  - Nail disorder [Recovering/Resolving]
  - Aphthous ulcer [Recovering/Resolving]
  - Eye pain [Unknown]

NARRATIVE: CASE EVENT DATE: 20191101
